FAERS Safety Report 7709080-9 (Version None)
Quarter: 2011Q3

REPORT INFORMATION
  Report Type: 
  Country: None (occurrence: None)
  Receive Date: 20110825
  Receipt Date: 20110817
  Transmission Date: 20111222
  Serious: Yes (Death)
  Sender: FDA-Public Use
  Company Number: AU-PURDUE-USA-2011-0073696

PATIENT
  Sex: Female

DRUGS (1)
  1. DILAUDID-HP [Suspect]
     Indication: CANCER PAIN
     Dosage: 0.8 MG, DAILY
     Route: 051
     Dates: start: 20110815, end: 20110817

REACTIONS (1)
  - DEATH [None]
